FAERS Safety Report 4962294-3 (Version None)
Quarter: 2006Q2

REPORT INFORMATION
  Report Type: 
  Country: None (occurrence: None)
  Receive Date: 20060404
  Receipt Date: 20050803
  Transmission Date: 20061013
  Serious: No
  Sender: FDA-Public Use
  Company Number: US-BRISTOL-MYERS SQUIBB COMPANY-13061940

PATIENT
  Sex: Female

DRUGS (2)
  1. HYDREA [Suspect]
     Indication: PLATELET COUNT DECREASED
     Route: 048
  2. DEPAKOTE [Concomitant]
     Indication: CONVULSION

REACTIONS (1)
  - DYSPNOEA [None]
